FAERS Safety Report 21727179 (Version 1)
Quarter: 2022Q4

REPORT INFORMATION
  Report Type: Spontaneous
  Country: US (occurrence: None)
  Receive Date: 20221213
  Receipt Date: 20221213
  Transmission Date: 20230113
  Serious: Yes (Hospitalization)
  Sender: FDA-Public Use
  Company Number: None

PATIENT
  Age: 66 Year
  Sex: Female

DRUGS (1)
  1. CAPECITABINE [Suspect]
     Active Substance: CAPECITABINE
     Dosage: FREQUENCY : TWICE A DAY;?

REACTIONS (5)
  - Surgery [None]
  - Procedural pain [None]
  - Hypoaesthesia [None]
  - Hypoaesthesia [None]
  - Onychoclasis [None]

NARRATIVE: CASE EVENT DATE: 20221206
